FAERS Safety Report 5275902-7 (Version None)
Quarter: 2007Q1

REPORT INFORMATION
  Report Type: 
  Country: None (occurrence: None)
  Receive Date: 20070326
  Receipt Date: 20070319
  Transmission Date: 20070707
  Serious: Yes (Other)
  Sender: FDA-Public Use
  Company Number: JP-MERCK-0703USA02274

PATIENT
  Age: 91 Year
  Sex: Female

DRUGS (4)
  1. PEPCID [Suspect]
     Route: 048
  2. ALLOPURINOL [Suspect]
     Route: 048
     Dates: start: 20070211
  3. PREDNISOLONE [Concomitant]
     Route: 048
     Dates: start: 20070228
  4. LANSOPRAZOLE [Suspect]
     Route: 048
     Dates: start: 20070224, end: 20070225

REACTIONS (1)
  - EOSINOPHILIC PNEUMONIA [None]
